FAERS Safety Report 24382282 (Version 1)
Quarter: 2024Q4

REPORT INFORMATION
  Report Type: Report from Study
  Country: CA (occurrence: CA)
  Receive Date: 20241001
  Receipt Date: 20241001
  Transmission Date: 20250115
  Serious: Yes (Other)
  Sender: AMGEN
  Company Number: CA-AMGEN-CANSL2024191589

PATIENT
  Age: 67 Year
  Sex: Female

DRUGS (1)
  1. VECTIBIX [Suspect]
     Active Substance: PANITUMUMAB
     Indication: Colorectal cancer metastatic
     Dosage: UNK
     Route: 065
     Dates: start: 202401

REACTIONS (4)
  - Nail deformation [Unknown]
  - Facial discomfort [Unknown]
  - Inflammation [Unknown]
  - Skin disorder [Unknown]

NARRATIVE: CASE EVENT DATE: 20240101
